FAERS Safety Report 5646443-X (Version None)
Quarter: 2008Q1

REPORT INFORMATION
  Report Type: 
  Country: None (occurrence: None)
  Receive Date: 20080228
  Receipt Date: 20080228
  Transmission Date: 20080703
  Serious: Yes (Hospitalization)
  Sender: FDA-Public Use
  Company Number: None

PATIENT
  Sex: Female
  Weight: 77.1115 kg

DRUGS (5)
  1. CIPRO [Suspect]
     Indication: URINARY TRACT INFECTION
     Dosage: PO
     Route: 048
     Dates: start: 20061230
  2. ARICEPT [Suspect]
     Indication: DEMENTIA
     Dosage: PO STARTED 1 WEEK PRIOR TO ADMISSION
     Route: 048
  3. RISPERDAL [Suspect]
     Indication: DEMENTIA
     Dosage: PO
     Route: 048
  4. NEURONTIN [Concomitant]
  5. ZIAC [Concomitant]

REACTIONS (4)
  - DYSSTASIA [None]
  - GAIT DISTURBANCE [None]
  - MUSCULAR WEAKNESS [None]
  - TREMOR [None]
